FAERS Safety Report 7676120-5 (Version None)
Quarter: 2011Q3

REPORT INFORMATION
  Report Type: 
  Country: None (occurrence: None)
  Receive Date: 20110811
  Receipt Date: 20110801
  Transmission Date: 20111222
  Serious: Yes (Hospitalization)
  Sender: FDA-Public Use
  Company Number: US-JNJFOC-20080707247

PATIENT
  Sex: Female
  Weight: 44.4 kg

DRUGS (5)
  1. INFLIXIMAB [Suspect]
     Route: 042
     Dates: start: 20050901
  2. SULFASALAZINE [Concomitant]
  3. INFLIXIMAB [Suspect]
     Indication: INFLAMMATORY BOWEL DISEASE
     Route: 042
     Dates: start: 20050402
  4. AZATHIOPRINE [Concomitant]
  5. INFLIXIMAB [Suspect]
     Dosage: COMPLETED 3DOSES
     Route: 042
     Dates: start: 20050520, end: 20050720

REACTIONS (1)
  - INFLAMMATORY BOWEL DISEASE [None]
